FAERS Safety Report 17042952 (Version 1)
Quarter: 2019Q4

REPORT INFORMATION
  Report Type: Spontaneous
  Country: RO (occurrence: RO)
  Receive Date: 20191118
  Receipt Date: 20191118
  Transmission Date: 20200122
  Serious: Yes (Other)
  Sender: FDA-Public Use
  Company Number: RO-ROCHE-2465738

PATIENT
  Age: 33 Year
  Sex: Female

DRUGS (6)
  1. AVASTIN [Suspect]
     Active Substance: BEVACIZUMAB
     Dosage: NO
     Route: 065
     Dates: start: 201808, end: 20180925
  2. LEUCOVORIN [FOLINIC ACID] [Concomitant]
     Active Substance: LEUCOVORIN
     Indication: COLON CANCER METASTATIC
     Route: 065
     Dates: start: 20180522, end: 20180806
  3. OXALIPLATIN. [Concomitant]
     Active Substance: OXALIPLATIN
     Indication: COLON CANCER METASTATIC
     Route: 065
     Dates: start: 20180522, end: 20180806
  4. AVASTIN [Suspect]
     Active Substance: BEVACIZUMAB
     Indication: ADENOCARCINOMA OF COLON
     Dosage: NO
     Route: 065
     Dates: start: 201805, end: 20180806
  5. CAPECITABINE. [Suspect]
     Active Substance: CAPECITABINE
     Indication: COLON CANCER METASTATIC
     Route: 065
     Dates: start: 201808, end: 20180925
  6. 5 FLUROURACIL [Concomitant]
     Active Substance: FLUOROURACIL
     Indication: COLON CANCER METASTATIC
     Route: 065
     Dates: start: 20180522, end: 20180806

REACTIONS (4)
  - Carbohydrate antigen 19-9 increased [Unknown]
  - Hepatocellular injury [Recovered/Resolved]
  - Blood lactate dehydrogenase increased [Recovered/Resolved]
  - Vena cava thrombosis [Unknown]

NARRATIVE: CASE EVENT DATE: 201805
